FAERS Safety Report 9713308 (Version 1)
Quarter: 2013Q4

REPORT INFORMATION
  Report Type: Spontaneous
  Country: US (occurrence: None)
  Receive Date: 20131125
  Receipt Date: 20131125
  Transmission Date: 20140711
  Serious: Yes (Other)
  Sender: FDA-Public Use
  Company Number: None

PATIENT
  Age: 45 Year
  Sex: Male
  Weight: 102 kg

DRUGS (1)
  1. VORICONAZOLE [Suspect]
     Indication: MENINGITIS FUNGAL
     Dosage: 580
     Route: 042
     Dates: start: 20130716

REACTIONS (2)
  - Blister [None]
  - Photosensitivity reaction [None]
